FAERS Safety Report 7047750-9 (Version None)
Quarter: 2010Q4

REPORT INFORMATION
  Report Type: 
  Country: None (occurrence: None)
  Receive Date: 20101015
  Receipt Date: 20101005
  Transmission Date: 20110411
  Serious: Yes (Other)
  Sender: FDA-Public Use
  Company Number: JP-PFIZER INC-2010130551

PATIENT
  Age: 81 Year
  Sex: Female

DRUGS (3)
  1. LIPITOR [Suspect]
     Dosage: UNK
     Route: 048
  2. CIBENOL [Concomitant]
     Dosage: UNK
     Dates: start: 20100925
  3. PRIMPERAN [Concomitant]

REACTIONS (2)
  - DECREASED APPETITE [None]
  - MOBILITY DECREASED [None]
